FAERS Safety Report 15041488 (Version 2)
Quarter: 2018Q3

REPORT INFORMATION
  Report Type: Report from Study
  Country: US (occurrence: US)
  Receive Date: 20180621
  Receipt Date: 20180702
  Transmission Date: 20181010
  Serious: Yes (Hospitalization, Other)
  Sender: FDA-Public Use
  Company Number: US-HORIZON-KRY-0176-2018

PATIENT
  Age: 38 Year
  Sex: Male

DRUGS (1)
  1. KRYSTEXXA [Suspect]
     Active Substance: PEGLOTICASE
     Indication: GOUT
     Dosage: 8 MG /Q2/ WEEKS
     Dates: start: 20180517, end: 20180607

REACTIONS (2)
  - Presyncope [Recovered/Resolved]
  - Ocular hyperaemia [Recovered/Resolved]
